FAERS Safety Report 19357918 (Version 3)
Quarter: 2021Q3

REPORT INFORMATION
  Report Type: Spontaneous
  Country: US (occurrence: US)
  Receive Date: 20210602
  Receipt Date: 20210720
  Transmission Date: 20211014
  Serious: No
  Sender: FDA-Public Use
  Company Number: US-ELI_LILLY_AND_COMPANY-US202106000525

PATIENT

DRUGS (2)
  1. TALTZ [Suspect]
     Active Substance: IXEKIZUMAB
     Indication: PSORIASIS
     Dosage: UNK UNK, OTHER, EVERY 28 DAYS
     Route: 065
     Dates: start: 2020
  2. CIPRO [CIPROFLOXACIN HYDROCHLORIDE MONOHYDRAT [Concomitant]
     Indication: URINARY TRACT DISCOMFORT
     Dosage: UNK UNK, UNKNOWN

REACTIONS (3)
  - Acute psychosis [Recovering/Resolving]
  - Acute stress disorder [Unknown]
  - Panic attack [Recovering/Resolving]
